FAERS Safety Report 8524138-2 (Version None)
Quarter: 2012Q2

REPORT INFORMATION
  Report Type: 
  Country: None (occurrence: None)
  Receive Date: 20120406
  Receipt Date: 20111228
  Transmission Date: 20120825
  Serious: Yes (Hospitalization)
  Sender: FDA-Public Use
  Company Number: US-CYPR-2011-000074

PATIENT
  Sex: Male
  Weight: 81 kg

DRUGS (5)
  1. ASPIRIN [Suspect]
     Indication: CORONARY ARTERY DISEASE
     Dosage: (325 MG QD ORAL)
     Route: 048
     Dates: start: 20100504, end: 20111227
  2. CYPHER STENT [Concomitant]
  3. CLOPIDOGREL OR PLACEBO 75 MG  (BRISTOL-MYERS SQUIBB/SANOFI-AVENTIS) [Suspect]
     Indication: ANTIPLATELET THERAPY
     Dosage: (75 MG QD ORAL)
     Route: 048
     Dates: start: 20110425, end: 20111227
  4. METOPROLOL SUCCINATE [Concomitant]
  5. NITROGLYCERIN [Concomitant]

REACTIONS (1)
  - GASTROINTESTINAL HAEMORRHAGE [None]
